FAERS Safety Report 7490178-8 (Version None)
Quarter: 2011Q2

REPORT INFORMATION
  Report Type: 
  Country: None (occurrence: None)
  Receive Date: 20110519
  Receipt Date: 20110419
  Transmission Date: 20111010
  Serious: Yes (Hospitalization, Other)
  Sender: FDA-Public Use
  Company Number: US-BAYER-2011-005981

PATIENT
  Age: 31 Year
  Sex: Female
  Weight: 52 kg

DRUGS (5)
  1. PERCOCET [Concomitant]
  2. MOTRIN [Concomitant]
  3. YAZ [Suspect]
     Dosage: UNK
     Dates: start: 20060501, end: 20100101
  4. YAZ [Suspect]
     Indication: PRODUCT USED FOR UNKNOWN INDICATION
     Dosage: UNK
     Route: 048
     Dates: start: 20080227
  5. COLACE [Concomitant]

REACTIONS (3)
  - PAIN [None]
  - CHOLECYSTECTOMY [None]
  - CHOLECYSTITIS CHRONIC [None]
